FAERS Safety Report 8814372 (Version 2)
Quarter: 2012Q4

REPORT INFORMATION
  Report Type: 
  Country: IT (occurrence: IT)
  Receive Date: 20120928
  Receipt Date: 20121025
  Transmission Date: 20130627
  Serious: Yes (Hospitalization)
  Sender: FDA-Public Use
  Company Number: PHHO2012IT013766

PATIENT
  Age: 64 Year
  Sex: Female
  Weight: 59 kg

DRUGS (5)
  1. INC424 [Suspect]
     Indication: MYELOFIBROSIS
     Dosage: 20 mg, BID
     Route: 048
     Dates: start: 20120719, end: 20120920
  2. VALSARTAN [Suspect]
     Indication: HYPERTENSION
     Dosage: 40 mg, BID
     Route: 048
     Dates: start: 2003
  3. CARVEDILOL [Concomitant]
     Indication: HYPERTENSION
     Dosage: 25 mg, BID
     Route: 048
     Dates: start: 2003
  4. ACETYLSALICYLIC ACID [Concomitant]
     Indication: THROMBOCYTOSIS
     Dosage: 100 mg, BID
     Route: 048
     Dates: start: 2003
  5. ACETYLSALICYLIC ACID [Concomitant]
     Indication: HYPERTENSION

REACTIONS (1)
  - Cardiac failure [Recovering/Resolving]
